FAERS Safety Report 21122581 (Version 1)
Quarter: 2022Q3

REPORT INFORMATION
  Report Type: Report from Study
  Country: CA (occurrence: CA)
  Receive Date: 20220723
  Receipt Date: 20220723
  Transmission Date: 20221027
  Serious: Yes (Other)
  Sender: FDA-Public Use
  Company Number: CA-CELLTRION INC.-2022CA011779

PATIENT

DRUGS (2)
  1. TRUXIMA [Suspect]
     Active Substance: RITUXIMAB-ABBS
     Indication: Hodgkin^s disease
     Dosage: 670 MG (VOL: 67ML) EVERY 21 DAYS CYCLE/DAY: 7/1
     Route: 042
  2. CYCLOPHOSPHAMIDE\DOXORUBICIN\PREDNISONE\VINCRISTINE [Suspect]
     Active Substance: CYCLOPHOSPHAMIDE\DOXORUBICIN\PREDNISONE\VINCRISTINE
     Indication: Hodgkin^s disease
     Dosage: CYCLO 750/M2+DOXO 50/M2+VCR 1.4/M2+PRED EVERY 21 DAYS; CYCLE/DAY: 7/1

REACTIONS (3)
  - Hodgkin^s disease [Unknown]
  - Off label use [Unknown]
  - Inability to afford medication [Unknown]
